FAERS Safety Report 6325241-8 (Version None)
Quarter: 2009Q3

REPORT INFORMATION
  Report Type: 
  Country: None (occurrence: None)
  Receive Date: 20090820
  Receipt Date: 20090810
  Transmission Date: 20100115
  Serious: Yes (Other)
  Sender: FDA-Public Use
  Company Number: GXKR2009GB08997

PATIENT
  Sex: Female

DRUGS (4)
  1. TRANEXAMIC ACID (NGX) (TRANEXAMIC ACID) UNKNOWN [Suspect]
  2. WARFARIN SODIUM [Suspect]
  3. MEFENAMIC ACID [Suspect]
  4. HEPARIN [Suspect]

REACTIONS (5)
  - DRUG INTERACTION [None]
  - EPISTAXIS [None]
  - EYE HAEMORRHAGE [None]
  - HAEMORRHAGIC DIATHESIS [None]
  - INCREASED TENDENCY TO BRUISE [None]
